FAERS Safety Report 23493273 (Version 1)
Quarter: 2024Q1

REPORT INFORMATION
  Report Type: Spontaneous
  Country: US (occurrence: None)
  Receive Date: 20240206
  Receipt Date: 20240206
  Transmission Date: 20240410
  Serious: Yes (Other)
  Sender: FDA-Public Use
  Company Number: None

PATIENT
  Age: 76 Year
  Sex: Male
  Weight: 77.85 kg

DRUGS (6)
  1. REPATHA [Suspect]
     Active Substance: EVOLOCUMAB
     Indication: Blood cholesterol
     Dosage: OTHER QUANTITY : 1 INJECTION(S);?OTHER FREQUENCY : EVERY 2 WEEKS;?
     Route: 058
     Dates: start: 20190501
  2. PREDNISONE [Suspect]
     Active Substance: PREDNISONE
  3. TIMOLOL [Concomitant]
     Active Substance: TIMOLOL
  4. ASPIRIN [Concomitant]
     Active Substance: ASPIRIN
  5. Netrition Active Man^s multi-vitamin [Concomitant]
  6. ALPHA LIPOIC ACID [Concomitant]
     Active Substance: .ALPHA.-LIPOIC ACID

REACTIONS (6)
  - Injection site haemorrhage [None]
  - Injection site bruising [None]
  - Skin atrophy [None]
  - Contusion [None]
  - Skin laceration [None]
  - Skin irritation [None]

NARRATIVE: CASE EVENT DATE: 20240205
